FAERS Safety Report 5729195-4 (Version None)
Quarter: 2008Q2

REPORT INFORMATION
  Report Type: 
  Country: None (occurrence: None)
  Receive Date: 20080430
  Receipt Date: 20071206
  Transmission Date: 20081010
  Serious: No
  Sender: FDA-Public Use
  Company Number: 2007PV033809

PATIENT
  Age: 63 Year
  Sex: Female

DRUGS (6)
  1. SYMLIN [Suspect]
     Indication: TYPE 1 DIABETES MELLITUS
     Dosage: 60 MCG;TID;SC ; 45 MCG;TID;SC ; 30 MCG;TID;SC ; 15 MCG;TID;SC
     Route: 058
     Dates: start: 20071101, end: 20071101
  2. SYMLIN [Suspect]
     Indication: TYPE 1 DIABETES MELLITUS
     Dosage: 60 MCG;TID;SC ; 45 MCG;TID;SC ; 30 MCG;TID;SC ; 15 MCG;TID;SC
     Route: 058
     Dates: start: 20071101, end: 20071101
  3. SYMLIN [Suspect]
     Indication: TYPE 1 DIABETES MELLITUS
     Dosage: 60 MCG;TID;SC ; 45 MCG;TID;SC ; 30 MCG;TID;SC ; 15 MCG;TID;SC
     Route: 058
     Dates: start: 20071101, end: 20071101
  4. SYMLIN [Suspect]
     Indication: TYPE 1 DIABETES MELLITUS
     Dosage: 60 MCG;TID;SC ; 45 MCG;TID;SC ; 30 MCG;TID;SC ; 15 MCG;TID;SC
     Route: 058
     Dates: start: 20071203
  5. LANTUS [Concomitant]
  6. NOVOLOG [Concomitant]

REACTIONS (2)
  - BLOOD GLUCOSE INCREASED [None]
  - RENAL FUNCTION TEST ABNORMAL [None]
